FAERS Safety Report 4850738-7 (Version None)
Quarter: 2005Q4

REPORT INFORMATION
  Report Type: 
  Country: None (occurrence: None)
  Receive Date: 20051208
  Receipt Date: 20051122
  Transmission Date: 20060501
  Serious: Yes (Other)
  Sender: FDA-Public Use
  Company Number: C-05-0051

PATIENT
  Sex: Male

DRUGS (1)
  1. VALPROIC ACID [Suspect]

REACTIONS (3)
  - GASTRIC DISORDER [None]
  - LIVER DISORDER [None]
  - RENAL DISORDER [None]
